FAERS Safety Report 16412691 (Version 1)
Quarter: 2019Q2

REPORT INFORMATION
  Report Type: Report from Study
  Country: CN (occurrence: CN)
  Receive Date: 20190611
  Receipt Date: 20190611
  Transmission Date: 20190711
  Serious: Yes (Other)
  Sender: FDA-Public Use
  Company Number: CN-AUROBINDO-AUR-APL-2019-033151

PATIENT

DRUGS (1)
  1. MELPHALAN. [Suspect]
     Active Substance: MELPHALAN
     Indication: RETINOBLASTOMA
     Dosage: UNK

REACTIONS (9)
  - Retinal degeneration [Unknown]
  - Ocular toxicity [Unknown]
  - Iris neovascularisation [Unknown]
  - Iris atrophy [Unknown]
  - Retinal haemorrhage [Unknown]
  - Visual acuity reduced [Unknown]
  - Retinal oedema [Unknown]
  - Iris adhesions [Unknown]
  - Vascular occlusion [Unknown]
